FAERS Safety Report 7798090-1 (Version None)
Quarter: 2011Q4

REPORT INFORMATION
  Report Type: 
  Country: None (occurrence: None)
  Receive Date: 20111005
  Receipt Date: 20110926
  Transmission Date: 20120403
  Serious: Yes (Hospitalization, Disabling)
  Sender: FDA-Public Use
  Company Number: CA-JNJFOC-20110911615

PATIENT
  Sex: Female
  Weight: 82.56 kg

DRUGS (5)
  1. PLAQUENIL [Concomitant]
  2. ESCITALOPRAM [Concomitant]
  3. ATIVAN [Concomitant]
     Dosage: 1MG (HALF A TAB AS NEEDED AT BEDTIME)
  4. REMICADE [Suspect]
     Indication: RHEUMATOID ARTHRITIS
     Route: 042
     Dates: start: 20100401
  5. CELEBREX [Concomitant]

REACTIONS (1)
  - JOINT SURGERY [None]
